FAERS Safety Report 6420041-2 (Version None)
Quarter: 2009Q4

REPORT INFORMATION
  Report Type: 
  Country: None (occurrence: None)
  Receive Date: 20091029
  Receipt Date: 20090731
  Transmission Date: 20100525
  Serious: No
  Sender: FDA-Public Use
  Company Number: A0799895A

PATIENT
  Age: 34 Year
  Sex: Female

DRUGS (12)
  1. IMITREX [Suspect]
     Indication: MIGRAINE
     Route: 045
     Dates: start: 20090101, end: 20090101
  2. PRILOSEC [Concomitant]
  3. CONJUGATED ESTROGENS [Concomitant]
  4. DIAMOX SRC [Concomitant]
  5. SYNTHROID [Concomitant]
  6. LASIX [Concomitant]
  7. POTASSIUM CHLORIDE [Concomitant]
  8. MULTI-VITAMIN [Concomitant]
  9. CARAFATE [Concomitant]
  10. WELLBUTRIN XL [Concomitant]
  11. FLURAZEPAM [Concomitant]
  12. TOPAMAX [Concomitant]

REACTIONS (1)
  - DRUG INEFFECTIVE [None]
